FAERS Safety Report 22245007 (Version 1)
Quarter: 2023Q2

REPORT INFORMATION
  Report Type: Spontaneous
  Country: US (occurrence: US)
  Receive Date: 20230424
  Receipt Date: 20230424
  Transmission Date: 20230722
  Serious: No
  Sender: FDA-Public Use
  Company Number: US-BIOGEN-2022BI01160598

PATIENT
  Sex: Female

DRUGS (2)
  1. VUMERITY [Suspect]
     Active Substance: DIROXIMEL FUMARATE
     Indication: Multiple sclerosis
     Dosage: THE PATIENT WOULD CONTINUE 231 MG BID FOR SEVEN DAYS AND THEN AFTER THE SEVEN DAYS (DAY EIGHT) WO...
     Route: 050
     Dates: start: 20221005
  2. VUMERITY [Suspect]
     Active Substance: DIROXIMEL FUMARATE
     Route: 050
     Dates: start: 20220923

REACTIONS (2)
  - Rash macular [Recovered/Resolved]
  - Hot flush [Recovered/Resolved]
